FAERS Safety Report 4330981-6 (Version None)
Quarter: 2004Q1

REPORT INFORMATION
  Report Type: 
  Country: None (occurrence: None)
  Receive Date: 20040329
  Receipt Date: 20040312
  Transmission Date: 20041129
  Serious: No
  Sender: FDA-Public Use
  Company Number: 2004-BP-01245NB

PATIENT
  Age: 71 Year
  Sex: Male

DRUGS (6)
  1. MICARDIS [Suspect]
     Indication: HYPERTENSION
     Dosage: 20 MG (20 MG)PO
     Route: 048
     Dates: start: 20040105
  2. OMEPRAL (OMEPRAZOLE) (TA) [Suspect]
     Indication: REFLUX OESOPHAGITIS
     Dosage: 10 MG ; PO
     Route: 048
     Dates: start: 20040105
  3. URSO (URSODEOXYCHOLIC ACID) (TA) [Concomitant]
  4. LIVACT (LIVACT) (GR) [Concomitant]
  5. PROTOLAC (LACTITOL) (PL) [Concomitant]
  6. ALDACTONE [Concomitant]

REACTIONS (3)
  - BLOOD CREATINE PHOSPHOKINASE INCREASED [None]
  - MUSCLE CRAMP [None]
  - MYALGIA [None]
